FAERS Safety Report 23662464 (Version 1)
Quarter: 2024Q1

REPORT INFORMATION
  Report Type: Report from Study
  Country: US (occurrence: US)
  Receive Date: 20240322
  Receipt Date: 20240322
  Transmission Date: 20240410
  Serious: Yes (Other)
  Sender: FDA-Public Use
  Company Number: US-Merck Healthcare KGaA-2024014777

PATIENT
  Sex: Male

DRUGS (1)
  1. REBIF [Suspect]
     Active Substance: INTERFERON BETA-1A
     Indication: Multiple sclerosis
     Route: 058
     Dates: start: 20050926, end: 20151130

REACTIONS (5)
  - Wound [Unknown]
  - Wound decomposition [Unknown]
  - Impaired healing [Unknown]
  - Skin disorder [Unknown]
  - Pain of skin [Unknown]
